FAERS Safety Report 5115793-8 (Version None)
Quarter: 2006Q3

REPORT INFORMATION
  Report Type: 
  Country: None (occurrence: None)
  Receive Date: 20060925
  Receipt Date: 20060912
  Transmission Date: 20061208
  Serious: Yes (Hospitalization)
  Sender: FDA-Public Use
  Company Number: 229868

PATIENT
  Age: 64 Year
  Sex: Male

DRUGS (2)
  1. AVASTIN [Suspect]
     Indication: GLIOMA
     Dosage: 5 MG/KG, Q2W, INTRAVENOUS
     Route: 042
  2. CPT-11 (IRINOTECAN HYDROCHLORIDE) [Concomitant]

REACTIONS (4)
  - DIALYSIS [None]
  - DIARRHOEA [None]
  - PROTEINURIA [None]
  - RENAL IMPAIRMENT [None]
